FAERS Safety Report 4535289-1 (Version None)
Quarter: 2004Q4

REPORT INFORMATION
  Report Type: 
  Country: None (occurrence: None)
  Receive Date: 20041214
  Receipt Date: 20040921
  Transmission Date: 20050328
  Serious: No
  Sender: FDA-Public Use
  Company Number: 2004237154US

PATIENT
  Sex: Male
  Weight: 136.1 kg

DRUGS (7)
  1. BEXTRA [Suspect]
     Indication: OSTEOARTHRITIS
     Dosage: 20 MG ; 10 MG  : QD, ORAL
     Route: 048
     Dates: start: 20030101
  2. NEURONTIN [Concomitant]
  3. GLUCOPHAGE [Concomitant]
  4. NEXIUM [Concomitant]
  5. DIGITEX [Concomitant]
  6. FUROSEMIDE [Concomitant]
  7. PAXIL [Concomitant]

REACTIONS (2)
  - CONDITION AGGRAVATED [None]
  - SPINAL COLUMN STENOSIS [None]
